FAERS Safety Report 5033231-0 (Version None)
Quarter: 2006Q2

REPORT INFORMATION
  Report Type: 
  Country: None (occurrence: None)
  Receive Date: 20060620
  Receipt Date: 20060606
  Transmission Date: 20061013
  Serious: Yes (Death)
  Sender: FDA-Public Use
  Company Number: 110884ISR

PATIENT
  Age: 72 Year
  Sex: Female

DRUGS (4)
  1. AMITRIPTYLINE HCL [Suspect]
     Indication: HEADACHE
     Dosage: 10 MILLIGRAM
     Route: 048
     Dates: start: 20051130
  2. PREDNISOLONE [Concomitant]
  3. OMEPRAZOLE [Concomitant]
  4. ALENDRONIC ACID [Concomitant]

REACTIONS (3)
  - APLASTIC ANAEMIA [None]
  - BACTERIAL SEPSIS [None]
  - SEPTIC SHOCK [None]
